FAERS Safety Report 12299088 (Version 1)
Quarter: 2016Q2

REPORT INFORMATION
  Report Type: Spontaneous
  Country: US (occurrence: None)
  Receive Date: 20160422
  Receipt Date: 20160422
  Transmission Date: 20160815
  Serious: No
  Sender: FDA-Public Use
  Company Number: None

PATIENT
  Age: 69 Year
  Sex: Male
  Weight: 86.18 kg

DRUGS (5)
  1. ISOSORB MONO ER [Concomitant]
  2. ALBUTEROL SULFATE INHAL AERO [Concomitant]
  3. ADVAIR DISKUS [Suspect]
     Active Substance: FLUTICASONE PROPIONATE\SALMETEROL XINAFOATE
     Indication: CHRONIC OBSTRUCTIVE PULMONARY DISEASE
     Route: 055
     Dates: start: 20151201, end: 20160115
  4. SIMVASTATIN. [Concomitant]
     Active Substance: SIMVASTATIN
  5. METOPROLOL ER [Concomitant]
     Active Substance: METOPROLOL SUCCINATE

REACTIONS (2)
  - Muscle spasms [None]
  - Therapy change [None]

NARRATIVE: CASE EVENT DATE: 20151201
